FAERS Safety Report 6739548-3 (Version None)
Quarter: 2010Q2

REPORT INFORMATION
  Report Type: 
  Country: None (occurrence: None)
  Receive Date: 20100525
  Receipt Date: 20100512
  Transmission Date: 20101027
  Serious: Yes (Other)
  Sender: FDA-Public Use
  Company Number: PL-GENZYME-CERZ-1001299

PATIENT

DRUGS (1)
  1. BLINDED CEREZYME [Suspect]
     Indication: GAUCHER'S DISEASE

REACTIONS (2)
  - MENINGITIS [None]
  - SEPSIS [None]
